APPROVED DRUG PRODUCT: OPANA
Active Ingredient: OXYMORPHONE HYDROCHLORIDE
Strength: 1.5MG/ML
Dosage Form/Route: INJECTABLE;INJECTION
Application: N011707 | Product #001
Applicant: ENDO PHARMACEUTICALS INC
Approved: Approved Prior to Jan 1, 1982 | RLD: No | RS: No | Type: DISCN